FAERS Safety Report 10384349 (Version 1)
Quarter: 2014Q3

REPORT INFORMATION
  Report Type: Spontaneous
  Country: HK (occurrence: HK)
  Receive Date: 20140814
  Receipt Date: 20140814
  Transmission Date: 20150326
  Serious: Yes (Death, Hospitalization)
  Sender: FDA-Public Use
  Company Number: HK-SA-2014SA107039

PATIENT
  Age: 58 Year
  Sex: Female

DRUGS (5)
  1. METFORMIN [Concomitant]
     Active Substance: METFORMIN HYDROCHLORIDE
  2. HEPARIN [Suspect]
     Active Substance: HEPARIN SODIUM
     Indication: PRODUCT USED FOR UNKNOWN INDICATION
     Dosage: 1.2 ML LOADED AT THE A-PORT AND 1.3 ML LOADED AT THE V-PORT OF HEMODIALYSIS CATHETER
     Route: 042
  3. INSULIN ISOPHANE HUMAN [Concomitant]
  4. LISINOPRIL. [Concomitant]
     Active Substance: LISINOPRIL
  5. ENOXAPARIN SODIUM. [Suspect]
     Active Substance: ENOXAPARIN SODIUM
     Indication: DEEP VEIN THROMBOSIS
     Route: 065

REACTIONS (8)
  - Peripheral swelling [Fatal]
  - Somnolence [Fatal]
  - Hemiplegia [Fatal]
  - Cerebral infarction [Fatal]
  - Cerebral artery thrombosis [Fatal]
  - Deep vein thrombosis [Fatal]
  - Heparin-induced thrombocytopenia [Fatal]
  - Cerebrovascular accident [Fatal]
